FAERS Safety Report 17492742 (Version 1)
Quarter: 2020Q1

REPORT INFORMATION
  Report Type: Spontaneous
  Country: US (occurrence: US)
  Receive Date: 20200304
  Receipt Date: 20200304
  Transmission Date: 20200409
  Serious: No
  Sender: FDA-Public Use
  Company Number: US-ASTRAZENECA-2020SE28736

PATIENT
  Sex: Male

DRUGS (1)
  1. SYNAGIS [Suspect]
     Active Substance: PALIVIZUMAB
     Indication: CONGENITAL HYPOPLASIA OF DEPRESSOR ANGULARIS ORIS MUSCLE
     Route: 030
     Dates: start: 20191127

REACTIONS (1)
  - Weight decreased [Unknown]
